FAERS Safety Report 6505413-X (Version None)
Quarter: 2009Q4

REPORT INFORMATION
  Report Type: 
  Country: None (occurrence: None)
  Receive Date: 20091201
  Receipt Date: 20090805
  Transmission Date: 20100525
  Serious: Yes (Hospitalization)
  Sender: FDA-Public Use
  Company Number: 2009SP020323

PATIENT
  Age: 26 Year
  Sex: Female
  Weight: 111.5849 kg

DRUGS (1)
  1. NUVARING [Suspect]
     Indication: CONTRACEPTION
     Dates: start: 20060718, end: 20061201

REACTIONS (3)
  - DEEP VEIN THROMBOSIS [None]
  - HEADACHE [None]
  - PULMONARY EMBOLISM [None]
